FAERS Safety Report 6217870-7 (Version None)
Quarter: 2009Q2

REPORT INFORMATION
  Report Type: 
  Country: None (occurrence: None)
  Receive Date: 20090604
  Receipt Date: 20090513
  Transmission Date: 20091009
  Serious: Yes (Hospitalization)
  Sender: FDA-Public Use
  Company Number: 000502

PATIENT
  Age: 42 Year
  Sex: Female

DRUGS (29)
  1. LACOSAMIDE [Suspect]
     Indication: EPILEPSY
     Dosage: SEE IMAGE
     Dates: start: 20090314, end: 20090314
  2. LACOSAMIDE [Suspect]
     Indication: EPILEPSY
     Dosage: SEE IMAGE
     Dates: start: 20051018
  3. LACOSAMIDE [Suspect]
     Indication: EPILEPSY
     Dosage: SEE IMAGE
     Dates: start: 20090303
  4. LACOSAMIDE [Suspect]
     Indication: EPILEPSY
     Dosage: SEE IMAGE
     Dates: start: 20090304
  5. LACOSAMIDE [Suspect]
     Indication: EPILEPSY
     Dosage: SEE IMAGE
     Dates: start: 20090305
  6. LACOSAMIDE [Suspect]
     Indication: EPILEPSY
     Dosage: SEE IMAGE
     Dates: start: 20090306
  7. LACOSAMIDE [Suspect]
     Indication: EPILEPSY
     Dosage: SEE IMAGE
     Dates: start: 20090310
  8. LACOSAMIDE [Suspect]
     Indication: EPILEPSY
     Dosage: SEE IMAGE
     Dates: start: 20090311
  9. LACOSAMIDE [Suspect]
     Indication: EPILEPSY
     Dosage: SEE IMAGE
     Dates: start: 20090312
  10. LACOSAMIDE [Suspect]
     Indication: EPILEPSY
     Dosage: SEE IMAGE
     Dates: start: 20090313
  11. LACOSAMIDE [Suspect]
  12. MEBEVERINE HYDROCHLORIDE (MEBEVERINE HYDROCHLORIDE) [Concomitant]
  13. LAMICTAL (LAMOTRIGINR) [Concomitant]
  14. SNO TEARS (POLYVINYL ALCOHOL) [Concomitant]
  15. VALPROATE SODIUM [Concomitant]
  16. LANSOPRAZOLE [Concomitant]
  17. VISCOTEARS (CARBOMER) [Concomitant]
  18. CLOBAZAM (CLOBAM) [Concomitant]
  19. MORPHINE SULPHATE BP (MORPHINE SULFATE) [Concomitant]
  20. ORAMORPH SR [Concomitant]
  21. NAPROXEN [Concomitant]
  22. ACETAMINOPHEN [Concomitant]
  23. IBUPROFEN [Concomitant]
  24. LACTULOSE [Concomitant]
  25. FYBOGEL (PLANTAGO OVATA) [Concomitant]
  26. LAMOTRIGINE [Concomitant]
  27. ADCAL-D3 (LEKOVIT CA) [Concomitant]
  28. NORTRIPTYLINE HCL [Concomitant]
  29. CYCLIZINE (CYCLIZINE) [Concomitant]

REACTIONS (1)
  - GRAND MAL CONVULSION [None]
